FAERS Safety Report 12686073 (Version 1)
Quarter: 2016Q3

REPORT INFORMATION
  Report Type: Spontaneous
  Country: US (occurrence: US)
  Receive Date: 20160825
  Receipt Date: 20160825
  Transmission Date: 20161109
  Serious: No
  Sender: FDA-Public Use
  Company Number: US-NOVOPROD-483518

PATIENT
  Sex: Female

DRUGS (1)
  1. VICTOZA [Suspect]
     Active Substance: LIRAGLUTIDE
     Indication: PRODUCT USED FOR UNKNOWN INDICATION
     Route: 058

REACTIONS (15)
  - Asthenia [Recovered/Resolved]
  - Flushing [Recovered/Resolved]
  - Hyperhidrosis [Unknown]
  - Abdominal pain [Not Recovered/Not Resolved]
  - Paraesthesia [Unknown]
  - Palpitations [Unknown]
  - Incorrect dose administered by device [Recovered/Resolved]
  - Dyspnoea [Recovered/Resolved]
  - Feeling abnormal [Recovered/Resolved]
  - Functional gastrointestinal disorder [Not Recovered/Not Resolved]
  - Feeling jittery [Unknown]
  - Blood glucose decreased [Recovered/Resolved]
  - Nausea [Unknown]
  - Headache [Unknown]
  - Blood glucose abnormal [Unknown]

NARRATIVE: CASE EVENT DATE: 20160216
